FAERS Safety Report 5093098-1 (Version None)
Quarter: 2006Q3

REPORT INFORMATION
  Report Type: 
  Country: None (occurrence: None)
  Receive Date: 20060830
  Receipt Date: 20060825
  Transmission Date: 20061208
  Serious: Yes (Other)
  Sender: FDA-Public Use
  Company Number: US-JNJFOC-20060805830

PATIENT
  Sex: Female
  Weight: 61.24 kg

DRUGS (7)
  1. REMICADE [Suspect]
  2. REMICADE [Suspect]
     Indication: CROHN'S DISEASE
  3. REMICADE [Suspect]
     Indication: RHEUMATOID ARTHRITIS
  4. ASACOL [Concomitant]
     Indication: CROHN'S DISEASE
  5. PLAQUENIL [Concomitant]
     Indication: RHEUMATOID ARTHRITIS
  6. 5-ASA [Concomitant]
     Indication: RHEUMATOID ARTHRITIS
     Dosage: }6 MONTHS
  7. PREDNISONE TAB [Concomitant]
     Indication: RHEUMATOID ARTHRITIS
     Dosage: {6 MONTHS

REACTIONS (1)
  - SYSTEMIC LUPUS ERYTHEMATOSUS [None]
